FAERS Safety Report 7422903-6 (Version None)
Quarter: 2011Q1

REPORT INFORMATION
  Report Type: 
  Country: None (occurrence: None)
  Receive Date: 20110328
  Receipt Date: 20110311
  Transmission Date: 20110831
  Serious: Yes (Hospitalization)
  Sender: FDA-Public Use
  Company Number: AECAN201100052

PATIENT
  Age: 8 Year
  Sex: Male

DRUGS (11)
  1. ACETAMINOPHEN [Concomitant]
  2. URSODIOL [Concomitant]
  3. ROCALTROL [Concomitant]
  4. GAMUNEX [Suspect]
  5. REACTINE [Concomitant]
  6. MEROPENEM [Concomitant]
  7. ZOFRAN [Concomitant]
  8. BENADRYL [Concomitant]
  9. CORTEF [Concomitant]
  10. NORVASC [Concomitant]
  11. IMURAN [Concomitant]

REACTIONS (3)
  - ANAPHYLACTIC SHOCK [None]
  - ACINETOBACTER TEST POSITIVE [None]
  - GENERAL PHYSICAL HEALTH DETERIORATION [None]
